FAERS Safety Report 8337994-8 (Version None)
Quarter: 2012Q2

REPORT INFORMATION
  Report Type: 
  Country: None (occurrence: None)
  Receive Date: 20120504
  Receipt Date: 20120425
  Transmission Date: 20120825
  Serious: Yes (Death)
  Sender: FDA-Public Use
  Company Number: ES-VERTEX PHARMACEUTICALS INC.-000000000000000602

PATIENT
  Age: 52 Year
  Sex: Male

DRUGS (3)
  1. PEGINTERFERON ALFA [Concomitant]
     Indication: HEPATITIS C
     Route: 065
  2. INCIVO (TELAPREVIR) [Suspect]
     Indication: HEPATITIS C
     Dosage: DOSAGE FORM: TABLET
     Route: 048
  3. RIBAVIRIN [Concomitant]
     Indication: HEPATITIS C
     Route: 065

REACTIONS (1)
  - DEATH [None]
